FAERS Safety Report 20297971 (Version 1)
Quarter: 2022Q1

REPORT INFORMATION
  Report Type: Spontaneous
  Country: US (occurrence: US)
  Receive Date: 20220105
  Receipt Date: 20220105
  Transmission Date: 20220423
  Serious: No
  Sender: FDA-Public Use
  Company Number: US-NOVITIUMPHARMA-2021USNVP00122

PATIENT

DRUGS (3)
  1. LEVORPHANOL TARTRATE [Suspect]
     Active Substance: LEVORPHANOL TARTRATE
     Indication: Neuralgia
     Dosage: 2MG TABLETS WAS CUT IN HALF TO GET 3MG DOSE
     Route: 048
  2. LYRICA [Concomitant]
     Active Substance: PREGABALIN
     Indication: Neuropathy peripheral
  3. OXYCODONE [Concomitant]
     Active Substance: OXYCODONE
     Indication: Product used for unknown indication

REACTIONS (1)
  - Product administration error [Unknown]
